FAERS Safety Report 18679508 (Version 2)
Quarter: 2021Q1

REPORT INFORMATION
  Report Type: Spontaneous
  Country: US (occurrence: US)
  Receive Date: 20201230
  Receipt Date: 20210128
  Transmission Date: 20210419
  Serious: Yes (Hospitalization, Other)
  Sender: FDA-Public Use
  Company Number: US-AUROBINDO-AUR-APL-2020-063409

PATIENT
  Age: 34 Year
  Sex: Female

DRUGS (2)
  1. CIPROFLOXACIN. [Concomitant]
     Active Substance: CIPROFLOXACIN
     Indication: DIVERTICULITIS
     Dosage: UNK
     Route: 065
  2. AMOXICILLIN. [Suspect]
     Active Substance: AMOXICILLIN
     Indication: TONSILLITIS
     Dosage: UNK
     Route: 065

REACTIONS (10)
  - Hypophagia [Unknown]
  - Glycosuria [Recovered/Resolved]
  - Hypokalaemia [Unknown]
  - Abdominal pain [Recovered/Resolved]
  - Dyspnoea [Recovered/Resolved]
  - Tubulointerstitial nephritis [Recovering/Resolving]
  - Oedema peripheral [Unknown]
  - Vomiting [Recovered/Resolved]
  - Nausea [Unknown]
  - Metabolic acidosis [Unknown]
